FAERS Safety Report 15417436 (Version 1)
Quarter: 2018Q3

REPORT INFORMATION
  Report Type: Spontaneous
  Country: US (occurrence: US)
  Receive Date: 20180917
  Receipt Date: 20180917
  Transmission Date: 20181010
  Serious: Yes (Hospitalization)
  Sender: FDA-Public Use
  Company Number: None

PATIENT
  Age: 37 Year
  Sex: Male
  Weight: 79.7 kg

DRUGS (3)
  1. PACLITAXEL. [Concomitant]
     Active Substance: PACLITAXEL
     Dates: end: 20171004
  2. GEMCITABINE HYDROCHLORIDE. [Suspect]
     Active Substance: GEMCITABINE HYDROCHLORIDE
     Dates: end: 20171115
  3. CISPLATIN. [Suspect]
     Active Substance: CISPLATIN
     Dates: end: 20170808

REACTIONS (7)
  - Tympanic membrane perforation [None]
  - Otitis externa [None]
  - Middle ear effusion [None]
  - Tinnitus [None]
  - Otitis media [None]
  - Deafness [None]
  - Sinusitis [None]

NARRATIVE: CASE EVENT DATE: 20180807
